FAERS Safety Report 10239141 (Version 1)
Quarter: 2014Q2

REPORT INFORMATION
  Report Type: Spontaneous
  Country: US (occurrence: US)
  Receive Date: 20140616
  Receipt Date: 20140616
  Transmission Date: 20141212
  Serious: Yes (Hospitalization, Other)
  Sender: FDA-Public Use
  Company Number: US-ENDO PHARMACEUTICALS INC.-OPIR20140003

PATIENT
  Sex: Male
  Weight: 181.15 kg

DRUGS (8)
  1. OPANA 10MG [Suspect]
     Indication: PAIN
     Route: 048
  2. ACTIQ [Suspect]
     Indication: TRIGEMINAL NEURALGIA
     Dosage: UNKNOWN
     Route: 002
  3. SERZONE [Suspect]
     Indication: DEPRESSION
     Route: 048
  4. SERZONE [Suspect]
     Route: 048
  5. EXALGO [Suspect]
     Indication: PAIN
     Dosage: UNKNOWN
     Route: 048
  6. FENTANYL [Suspect]
     Indication: PAIN
     Route: 062
     Dates: start: 201311
  7. TIAZAC [Concomitant]
     Indication: HYPERTENSION
     Route: 048
  8. ASPIRIN [Concomitant]
     Indication: PRODUCT USED FOR UNKNOWN INDICATION
     Route: 048

REACTIONS (28)
  - Suicidal ideation [Recovered/Resolved]
  - Blindness transient [Recovered/Resolved]
  - Brain oedema [Unknown]
  - Nephrolithiasis [Recovered/Resolved]
  - Loss of consciousness [Not Recovered/Not Resolved]
  - Mobility decreased [Unknown]
  - Drug interaction [Recovered/Resolved]
  - Drug withdrawal syndrome [Unknown]
  - Trigeminal neuralgia [Not Recovered/Not Resolved]
  - Condition aggravated [Not Recovered/Not Resolved]
  - Trigeminal neuralgia [Not Recovered/Not Resolved]
  - Herpes zoster [Not Recovered/Not Resolved]
  - Tinnitus [Not Recovered/Not Resolved]
  - Pain [Not Recovered/Not Resolved]
  - Toothache [Not Recovered/Not Resolved]
  - Muscle spasms [Not Recovered/Not Resolved]
  - Paraesthesia [Not Recovered/Not Resolved]
  - Hypoaesthesia oral [Recovered/Resolved]
  - Fall [Recovered/Resolved]
  - Hand fracture [Unknown]
  - Thermal burn [Unknown]
  - Stomatitis [Unknown]
  - Agitation [Recovered/Resolved]
  - Anxiety [Recovered/Resolved]
  - Heart rate increased [Recovered/Resolved]
  - Dyspnoea [Recovered/Resolved]
  - Euphoric mood [Unknown]
  - Somnolence [Recovered/Resolved]
